FAERS Safety Report 23487528 (Version 7)
Quarter: 2025Q4

REPORT INFORMATION
  Report Type: Spontaneous
  Country: CA (occurrence: CA)
  Receive Date: 20240206
  Receipt Date: 20251015
  Transmission Date: 20260118
  Serious: Yes (Life-Threatening, Hospitalization, Other)
  Sender: MYLAN
  Company Number: CA-MYLANLABS-2024M1011164

PATIENT
  Age: 47 Year
  Sex: Female

DRUGS (196)
  1. GABAPENTIN [Interacting]
     Active Substance: GABAPENTIN
     Indication: Scoliosis
     Dosage: 600 MILLIGRAM, TID (3 EVERY 1 DAYS)
  2. GABAPENTIN [Interacting]
     Active Substance: GABAPENTIN
     Indication: Pain
     Dosage: 600 MILLIGRAM, QID (4 EVERY 1 DAYS)
  3. GABAPENTIN [Interacting]
     Active Substance: GABAPENTIN
     Dosage: 400 MILLIGRAM, QID (4 EVERY 1 DAYS)
  4. GABAPENTIN [Interacting]
     Active Substance: GABAPENTIN
     Dosage: 400 MILLIGRAM, QID (4 EVERY 1 DAYS)
  5. GABAPENTIN [Interacting]
     Active Substance: GABAPENTIN
     Dosage: UNK
  6. GABAPENTIN [Interacting]
     Active Substance: GABAPENTIN
     Dosage: 600 MILLIGRAM, TID (3 EVERY 1 DAYS)
  7. GABAPENTIN [Interacting]
     Active Substance: GABAPENTIN
     Dosage: 600 MILLIGRAM, Q3D (1 EVERY .3 DAYS)
  8. GABAPENTIN [Interacting]
     Active Substance: GABAPENTIN
     Dosage: 400 MILLIGRAM, Q2D (1 EVERY .2 DAYS)
  9. GABAPENTIN [Interacting]
     Active Substance: GABAPENTIN
     Dosage: 600 MILLIGRAM
  10. GABAPENTIN [Interacting]
     Active Substance: GABAPENTIN
     Dosage: UNK
  11. GABAPENTIN [Interacting]
     Active Substance: GABAPENTIN
     Dosage: 600 MILLIGRAM, Q8H (1 EVERY 8 HOURS)
  12. VALPROATE [Interacting]
     Active Substance: VALPROIC ACID
     Indication: Mania
     Dosage: UNK
  13. VALPROATE [Interacting]
     Active Substance: VALPROIC ACID
     Indication: Affective disorder
     Dosage: 250 MILLIGRAM, QD (1 EVERY 1 DAYS)
  14. VALPROATE [Interacting]
     Active Substance: VALPROIC ACID
     Dosage: 500 MILLIGRAM, QD (1 EVERY 1 DAYS)
  15. VALPROATE [Interacting]
     Active Substance: VALPROIC ACID
     Dosage: 250 MILLIGRAM
  16. VALPROATE [Interacting]
     Active Substance: VALPROIC ACID
     Dosage: 500 MILLIGRAM
  17. VALPROATE [Interacting]
     Active Substance: VALPROIC ACID
     Dosage: 750 MILLIGRAM, QD (1 EVERY 1 DAYS)
  18. DIVALPROEX SODIUM [Interacting]
     Active Substance: DIVALPROEX SODIUM
     Indication: Mania
     Dosage: 500 MILLIGRAM
  19. DIVALPROEX SODIUM [Interacting]
     Active Substance: DIVALPROEX SODIUM
     Indication: Affective disorder
     Dosage: 750 MILLIGRAM
  20. DIVALPROEX SODIUM [Interacting]
     Active Substance: DIVALPROEX SODIUM
     Indication: Affective disorder
     Dosage: 250 MILLIGRAM, QD (1 EVERY 1 DAYS)
  21. DIVALPROEX SODIUM [Interacting]
     Active Substance: DIVALPROEX SODIUM
     Indication: Mania
     Dosage: 750 MILLIGRAM, QD (1 EVERY 1 DAYS)
  22. DIVALPROEX SODIUM [Interacting]
     Active Substance: DIVALPROEX SODIUM
     Dosage: 500 MILLIGRAM, QD (1 EVERY 1 DAYS)
  23. CYCLOBENZAPRINE [Interacting]
     Active Substance: CYCLOBENZAPRINE
     Indication: Scoliosis
     Dosage: 10 MILLIGRAM
  24. CYCLOBENZAPRINE [Interacting]
     Active Substance: CYCLOBENZAPRINE
     Indication: Pain
     Dosage: 10 MILLIGRAM, TID (3 EVERY 1 DAYS)
  25. CYCLOBENZAPRINE [Interacting]
     Active Substance: CYCLOBENZAPRINE
     Dosage: 10 MILLIGRAM, BID ( 2 EVERY 1 DAYS)
  26. CYCLOBENZAPRINE [Interacting]
     Active Substance: CYCLOBENZAPRINE
     Dosage: 50 MILLIGRAM, BID (1 EVERY 2 DAYS)
  27. CYCLOBENZAPRINE [Interacting]
     Active Substance: CYCLOBENZAPRINE
     Dosage: 10 MILLIGRAM, BID ( 2 EVERY 1 DAYS)
  28. CYCLOBENZAPRINE [Interacting]
     Active Substance: CYCLOBENZAPRINE
     Dosage: 10 MILLIGRAM, (1 EVERY .3 DAYS)
  29. CYCLOBENZAPRINE [Interacting]
     Active Substance: CYCLOBENZAPRINE
     Dosage: 10 MILLIGRAM, QD (1 EVERY 1 DAYS)
  30. CYCLOBENZAPRINE [Interacting]
     Active Substance: CYCLOBENZAPRINE
     Dosage: 10 MILLIGRAM,(1 EVERY .5 DAYS)
  31. DOXEPIN [Interacting]
     Active Substance: DOXEPIN
     Indication: Major depression
     Dosage: 50 MILLIGRAM, QD (1 EVERY 1 DAYS)
  32. DOXEPIN [Interacting]
     Active Substance: DOXEPIN
     Dosage: 100 MILLIGRAM, QD (1 EVERY 1 DAYS)
  33. DOXEPIN [Interacting]
     Active Substance: DOXEPIN
     Dosage: 150 MILLIGRAM, QD (1 EVERY 1 DAYS)
  34. QUETIAPINE [Interacting]
     Active Substance: QUETIAPINE
     Indication: Major depression
     Dosage: UNK
  35. QUETIAPINE [Interacting]
     Active Substance: QUETIAPINE
     Indication: Affective disorder
     Dosage: 50 MILLIGRAM, (1 EVERY .2 DAYS)
  36. QUETIAPINE [Interacting]
     Active Substance: QUETIAPINE
     Dosage: 100 MILLIGRAM, QD (1 EVERY 1 DAYS)
  37. DIVALPROEX SODIUM [Interacting]
     Active Substance: DIVALPROEX SODIUM
     Indication: Affective disorder
     Dosage: 750 MILLIGRAM
  38. DIVALPROEX SODIUM [Interacting]
     Active Substance: DIVALPROEX SODIUM
     Indication: Mania
     Dosage: 250 MILLIGRAM, QD (1 EVERY 1 DAYS)
  39. DIVALPROEX SODIUM [Interacting]
     Active Substance: DIVALPROEX SODIUM
     Dosage: 500 MILLIGRAM, QD (1 EVERY 1 DAYS)
  40. DIVALPROEX SODIUM [Interacting]
     Active Substance: DIVALPROEX SODIUM
     Dosage: UNK, QD (1 EVERY 1 DAYS)
  41. DIVALPROEX SODIUM [Interacting]
     Active Substance: DIVALPROEX SODIUM
     Dosage: 500 MILLIGRAM
  42. DIVALPROEX SODIUM [Interacting]
     Active Substance: DIVALPROEX SODIUM
     Dosage: UNK, QD (1 EVERY 1 DAYS)
  43. DIVALPROEX SODIUM [Interacting]
     Active Substance: DIVALPROEX SODIUM
     Dosage: 750 MILLIGRAM, QD (1 EVERY 1 DAYS)
  44. FLUOXETINE [Interacting]
     Active Substance: FLUOXETINE HYDROCHLORIDE
     Indication: Major depression
     Dosage: 20 MILLIGRAM, QD (1 EVERY 1 DAYS)
  45. FLUOXETINE [Interacting]
     Active Substance: FLUOXETINE HYDROCHLORIDE
     Dosage: 60 MILLIGRAM, QD (1 EVERY 1 DAYS)
  46. FLUOXETINE [Interacting]
     Active Substance: FLUOXETINE HYDROCHLORIDE
     Dosage: 80 MILLIGRAM, QD (1 EVERY 1 DAYS)
  47. FLUOXETINE [Interacting]
     Active Substance: FLUOXETINE HYDROCHLORIDE
     Dosage: 40 MILLIGRAM, QD (1 EVERY 1 DAYS)
  48. FLUOXETINE [Interacting]
     Active Substance: FLUOXETINE HYDROCHLORIDE
     Dosage: 60 MILLIGRAM, QD (1 EVERY 1 DAYS)
  49. FLUOXETINE [Interacting]
     Active Substance: FLUOXETINE HYDROCHLORIDE
     Dosage: 40 MILLIGRAM
  50. FLUOXETINE [Interacting]
     Active Substance: FLUOXETINE HYDROCHLORIDE
     Dosage: 40 MILLIGRAM, QD (1 EVERY 1 DAYS)
  51. FLUOXETINE [Interacting]
     Active Substance: FLUOXETINE HYDROCHLORIDE
     Dosage: 80 MILLIGRAM, QD (1 EVERY 1 DAYS)
  52. FLUOXETINE [Interacting]
     Active Substance: FLUOXETINE HYDROCHLORIDE
     Dosage: 20 MILLIGRAM
  53. FLUOXETINE [Interacting]
     Active Substance: FLUOXETINE HYDROCHLORIDE
     Dosage: 60 MILLIGRAM
  54. FLUOXETINE [Interacting]
     Active Substance: FLUOXETINE HYDROCHLORIDE
     Dosage: UNK
  55. FLUOXETINE [Interacting]
     Active Substance: FLUOXETINE HYDROCHLORIDE
     Dosage: 80 MILLIGRAM
  56. FLUOXETINE HYDROCHLORIDE [Interacting]
     Active Substance: FLUOXETINE HYDROCHLORIDE
     Indication: Major depression
     Dosage: 80 MILLIGRAM
  57. FLUOXETINE HYDROCHLORIDE [Interacting]
     Active Substance: FLUOXETINE HYDROCHLORIDE
     Dosage: 60 MILLIGRAM, QD (1 EVERY 1 DAYS)
  58. FLUOXETINE HYDROCHLORIDE [Interacting]
     Active Substance: FLUOXETINE HYDROCHLORIDE
     Dosage: 40 MILLIGRAM, QD (1 EVERY 1 DAYS)
  59. FLUOXETINE HYDROCHLORIDE [Interacting]
     Active Substance: FLUOXETINE HYDROCHLORIDE
     Dosage: UNK
  60. FLUOXETINE HYDROCHLORIDE [Interacting]
     Active Substance: FLUOXETINE HYDROCHLORIDE
     Dosage: 20 MILLIGRAM, QD (1 EVERY 1 DAYS
  61. FLUOXETINE HYDROCHLORIDE [Interacting]
     Active Substance: FLUOXETINE HYDROCHLORIDE
     Dosage: 80 MILLIGRAM, QD (1 EVERY 1 DAY)
  62. FLUOXETINE HYDROCHLORIDE [Interacting]
     Active Substance: FLUOXETINE HYDROCHLORIDE
     Dosage: 20 MILLIGRAM
  63. FLUOXETINE HYDROCHLORIDE [Interacting]
     Active Substance: FLUOXETINE HYDROCHLORIDE
     Dosage: 80 MILLIGRAM, QD (1 EVERY 1 DAYS)
  64. DEPAKOTE [Interacting]
     Active Substance: DIVALPROEX SODIUM
     Indication: Mania
     Dosage: 750 MILLIGRAM, QD (1 EVERY 1 DAYS)
  65. DEPAKOTE [Interacting]
     Active Substance: DIVALPROEX SODIUM
     Indication: Affective disorder
     Dosage: 250 MILLIGRAM, QD (1 EVERY 1 DAYS)
  66. DEPAKOTE [Interacting]
     Active Substance: DIVALPROEX SODIUM
     Dosage: 500 MILLIGRAM, QD (1 EVERY 1 DAYS)
  67. LORAZEPAM [Interacting]
     Active Substance: LORAZEPAM
     Indication: Withdrawal syndrome
     Dosage: UNK, QD (1 EVERY 24 HOURS)
  68. LORAZEPAM [Interacting]
     Active Substance: LORAZEPAM
     Indication: Anxiety
     Dosage: 2 MILLIGRAM, QID (4 EVERY 1 DAYS)
  69. LORAZEPAM [Interacting]
     Active Substance: LORAZEPAM
     Indication: Drug withdrawal syndrome
     Dosage: 3 MILLIGRAM
  70. LORAZEPAM [Interacting]
     Active Substance: LORAZEPAM
     Indication: Affective disorder
     Dosage: 4 MILLIGRAM
  71. LORAZEPAM [Interacting]
     Active Substance: LORAZEPAM
     Dosage: UNK, QID (4 EVERY 1 DAYS)
  72. LORAZEPAM [Interacting]
     Active Substance: LORAZEPAM
     Dosage: 2 MILLIGRAM
  73. LORAZEPAM [Interacting]
     Active Substance: LORAZEPAM
     Dosage: 7 MILLIGRAM
  74. LORAZEPAM [Interacting]
     Active Substance: LORAZEPAM
     Dosage: 1 MILLIGRAM
  75. LORAZEPAM [Interacting]
     Active Substance: LORAZEPAM
     Dosage: 1 MILLIGRAM
  76. LORAZEPAM [Interacting]
     Active Substance: LORAZEPAM
     Dosage: 6 MILLIGRAM
  77. LORAZEPAM [Interacting]
     Active Substance: LORAZEPAM
     Dosage: 5 MILLIGRAM
  78. LORAZEPAM [Interacting]
     Active Substance: LORAZEPAM
     Dosage: 1 MILLIGRAM (TOTAL)
  79. LORAZEPAM [Interacting]
     Active Substance: LORAZEPAM
     Dosage: 1 MILLIGRAM, QD (1 EVERY 24 HOURS)
  80. LORAZEPAM [Interacting]
     Active Substance: LORAZEPAM
     Dosage: 7 MILLIGRAM
  81. LORAZEPAM [Interacting]
     Active Substance: LORAZEPAM
     Dosage: 3 MILLIGRAM
  82. LORAZEPAM [Interacting]
     Active Substance: LORAZEPAM
     Dosage: 6 MILLIGRAM
  83. LORAZEPAM [Interacting]
     Active Substance: LORAZEPAM
     Dosage: 5 MILLIGRAM
  84. LORAZEPAM [Interacting]
     Active Substance: LORAZEPAM
     Dosage: 1 MILLIGRAM, QD (1 EVERY 1 DAYS)
  85. LORAZEPAM [Interacting]
     Active Substance: LORAZEPAM
     Dosage: 2 MILLIGRAM, (1 EVERY .2 DAYS)
  86. LORAZEPAM [Interacting]
     Active Substance: LORAZEPAM
     Dosage: 4 MILLIGRAM
  87. LORAZEPAM [Interacting]
     Active Substance: LORAZEPAM
     Dosage: UNK
  88. LORAZEPAM [Interacting]
     Active Substance: LORAZEPAM
     Dosage: 1 MILLIGRAM, ONCE
  89. LORAZEPAM [Interacting]
     Active Substance: LORAZEPAM
     Dosage: 1 MILLIGRAM, ONCE
  90. LORAZEPAM [Interacting]
     Active Substance: LORAZEPAM
     Dosage: 7 MILLIGRAM
  91. LORAZEPAM [Interacting]
     Active Substance: LORAZEPAM
     Dosage: 3 MILLIGRAM
  92. LORAZEPAM [Interacting]
     Active Substance: LORAZEPAM
     Dosage: 4 MILLIGRAM
  93. LORAZEPAM [Interacting]
     Active Substance: LORAZEPAM
     Dosage: 5 MILLIGRAM
  94. LORAZEPAM [Interacting]
     Active Substance: LORAZEPAM
     Dosage: 6 MILLIGRAM
  95. LORAZEPAM [Interacting]
     Active Substance: LORAZEPAM
     Dosage: UNK
  96. LORAZEPAM [Interacting]
     Active Substance: LORAZEPAM
     Dosage: UNK
  97. LORAZEPAM [Interacting]
     Active Substance: LORAZEPAM
     Dosage: 2 MILLIGRAM, QID (4 EVERY 1 DAYS)
  98. LORAZEPAM [Interacting]
     Active Substance: LORAZEPAM
     Dosage: 1 MILLIGRAM, QD (1 EVERY 1 DAYS)
  99. METHADONE [Interacting]
     Active Substance: METHADONE HYDROCHLORIDE
     Indication: Drug use disorder
     Dosage: 60 MILLIGRAM, QD (1 EVERY 24 HOURS)
  100. METHADONE [Interacting]
     Active Substance: METHADONE HYDROCHLORIDE
     Dosage: 75 MILLIGRAM, QD (1 EVERY 1 DAYS)
  101. METHADONE [Interacting]
     Active Substance: METHADONE HYDROCHLORIDE
     Dosage: 40 MILLIGRAM, QD (1 EVERY 24 HOURS)
  102. METHADONE [Interacting]
     Active Substance: METHADONE HYDROCHLORIDE
     Dosage: 50 MILLIGRAM, QD (1 EVERY 24 HOURS)
  103. METHADONE [Interacting]
     Active Substance: METHADONE HYDROCHLORIDE
     Dosage: 60 MILLIGRAM, QD (1 EVERY 1 DAY)
  104. METHADONE [Interacting]
     Active Substance: METHADONE HYDROCHLORIDE
     Dosage: 30 MILLIGRAM, QD (1 EVERY 24 HOURS)
  105. METHADONE [Interacting]
     Active Substance: METHADONE HYDROCHLORIDE
     Dosage: 75 MILLIGRAM, QD (1 EVERY 1 DAYS)
  106. METHADONE [Interacting]
     Active Substance: METHADONE HYDROCHLORIDE
     Dosage: 60 MILLIGRAM, QD (1 EVERY 1 DAYS)
  107. METHADONE [Interacting]
     Active Substance: METHADONE HYDROCHLORIDE
     Dosage: 40 MILLIGRAM
  108. METHADONE [Interacting]
     Active Substance: METHADONE HYDROCHLORIDE
     Dosage: 50 MILLIGRAM
  109. METHADONE [Interacting]
     Active Substance: METHADONE HYDROCHLORIDE
     Dosage: 50 MILLIGRAM, QD (1 EVERY 1 DAYS)
  110. METHADONE [Interacting]
     Active Substance: METHADONE HYDROCHLORIDE
     Dosage: 75 MILLIGRAM, QD (1 EVERY 1 DAYS)
  111. METHADONE [Interacting]
     Active Substance: METHADONE HYDROCHLORIDE
     Dosage: 40 MILLIGRAM, QD (1 EVERY 24 HOURS)
  112. METHADONE [Interacting]
     Active Substance: METHADONE HYDROCHLORIDE
     Dosage: 60 MILLIGRAM
  113. METHADONE [Interacting]
     Active Substance: METHADONE HYDROCHLORIDE
     Dosage: 50 MILLIGRAM
  114. METHADONE [Interacting]
     Active Substance: METHADONE HYDROCHLORIDE
     Dosage: 40 MILLIGRAM
  115. QUETIAPINE FUMARATE [Interacting]
     Active Substance: QUETIAPINE FUMARATE
     Indication: Major depression
     Dosage: UNK
  116. QUETIAPINE FUMARATE [Interacting]
     Active Substance: QUETIAPINE FUMARATE
     Indication: Affective disorder
     Dosage: UNK
  117. QUETIAPINE FUMARATE [Interacting]
     Active Substance: QUETIAPINE FUMARATE
     Dosage: 100 MILLIGRAM
  118. QUETIAPINE FUMARATE [Interacting]
     Active Substance: QUETIAPINE FUMARATE
     Dosage: 100 MILLIGRAM, QD (1 EVERY 1 DAYS)
  119. QUETIAPINE FUMARATE [Interacting]
     Active Substance: QUETIAPINE FUMARATE
     Dosage: 50 MILLIGRAM, QID (4 EVERY 1 DAYS)
  120. QUETIAPINE FUMARATE [Interacting]
     Active Substance: QUETIAPINE FUMARATE
     Dosage: UNK, QID (4 EVERY 1 DAYS)
  121. RISPERDAL [Interacting]
     Active Substance: RISPERIDONE
     Indication: Affective disorder
     Dosage: 1 MILLIGRAM, QD (1 EVERY 1 DAYS)
  122. RISPERDAL [Interacting]
     Active Substance: RISPERIDONE
     Dosage: 0.25 MILLIGRAM, QD (1 EVERY 1 DAYS)
  123. RISPERIDONE [Interacting]
     Active Substance: RISPERIDONE
     Indication: Affective disorder
     Dosage: 1 MILLIGRAM, QD (1 EVERY 24 HOURS)
  124. RISPERIDONE [Interacting]
     Active Substance: RISPERIDONE
     Dosage: 0.25 MILLIGRAM, QD (1 EVERY 1 DAYS)
  125. DOXEPIN HYDROCHLORIDE [Interacting]
     Active Substance: DOXEPIN HYDROCHLORIDE
     Indication: Major depression
     Dosage: 100 MILLIGRAM, QD (1 EVERY 24 HOURS)
  126. DOXEPIN HYDROCHLORIDE [Interacting]
     Active Substance: DOXEPIN HYDROCHLORIDE
     Dosage: 150 MILLIGRAM
  127. DOXEPIN HYDROCHLORIDE [Interacting]
     Active Substance: DOXEPIN HYDROCHLORIDE
     Dosage: 50 MILLIGRAM, QD (1 EVERY 1 DAY)
  128. DOXEPIN HYDROCHLORIDE [Interacting]
     Active Substance: DOXEPIN HYDROCHLORIDE
     Dosage: UNK
  129. DOXEPIN HYDROCHLORIDE [Interacting]
     Active Substance: DOXEPIN HYDROCHLORIDE
     Dosage: 150 MILLIGRAM, QD (1 EVERY 1 DAYS)
  130. DOXEPIN HYDROCHLORIDE [Interacting]
     Active Substance: DOXEPIN HYDROCHLORIDE
     Dosage: 150 MILLIGRAM
  131. DOXEPIN HYDROCHLORIDE [Interacting]
     Active Substance: DOXEPIN HYDROCHLORIDE
     Dosage: 100 MILLIGRAM
  132. DOXEPIN [Interacting]
     Active Substance: DOXEPIN
     Indication: Major depression
     Dosage: 100 MILLIGRAM, QD (1 EVERY 1 DAYS)
  133. DOXEPIN [Interacting]
     Active Substance: DOXEPIN
     Dosage: 100 MILLIGRAM
  134. DOXEPIN [Interacting]
     Active Substance: DOXEPIN
     Dosage: UNK
  135. DOXEPIN [Interacting]
     Active Substance: DOXEPIN
     Dosage: 150 MILLIGRAM, QD (1 EVERY 1 DAYS)
  136. DOXEPIN [Interacting]
     Active Substance: DOXEPIN
     Dosage: 150 MILLIGRAM
  137. DOXEPIN [Interacting]
     Active Substance: DOXEPIN
     Dosage: 50 MILLIGRAM, QD (1 EVERY 1 DAYS)
  138. DOXEPIN [Interacting]
     Active Substance: DOXEPIN
     Dosage: 150 MILLIGRAM, QD (1 EVERY 1 DAYS)
  139. CYCLOBENZAPRINE [Interacting]
     Active Substance: CYCLOBENZAPRINE
     Indication: Scoliosis
     Dosage: 10 MILLIGRAM, TID (3 EVERY 1 DAYS)
  140. CYCLOBENZAPRINE [Interacting]
     Active Substance: CYCLOBENZAPRINE
     Indication: Pain
     Dosage: 10 MILLIGRAM, BID (2 EVERY 1 DAYS)
  141. CYCLOBENZAPRINE [Interacting]
     Active Substance: CYCLOBENZAPRINE
     Dosage: 50 MILLIEQUIVALENT, BID (2 EVERY 1 DAYS)
  142. CYCLOBENZAPRINE [Interacting]
     Active Substance: CYCLOBENZAPRINE
     Dosage: UNK
  143. CYCLOBENZAPRINE [Interacting]
     Active Substance: CYCLOBENZAPRINE
     Dosage: 3 DOSAGE FORM, QD (1 EVERY 1 DAYS)
  144. CYCLOBENZAPRINE [Interacting]
     Active Substance: CYCLOBENZAPRINE
     Dosage: 10 MILLIGRAM, 1 EVERY 12 MONTHS
  145. CYCLOBENZAPRINE [Interacting]
     Active Substance: CYCLOBENZAPRINE
     Dosage: 50 MILLIGRAM, BID (2 EVERY 1 DAYS)
  146. CYCLOBENZAPRINE [Interacting]
     Active Substance: CYCLOBENZAPRINE
     Dosage: 10 MILLIGRAM
  147. QUETIAPINE [Interacting]
     Active Substance: QUETIAPINE
     Indication: Major depression
     Dosage: 50 MILLIGRAM, QID (4 EVERY 1 DAYS)
  148. QUETIAPINE [Interacting]
     Active Substance: QUETIAPINE
     Dosage: 100 MILLIGRAM
  149. QUETIAPINE [Interacting]
     Active Substance: QUETIAPINE
     Dosage: UNK
  150. QUETIAPINE [Interacting]
     Active Substance: QUETIAPINE
     Dosage: UNK, QD (1 EVERY 1 DAYS)
  151. QUETIAPINE [Interacting]
     Active Substance: QUETIAPINE
     Dosage: UNK
  152. QUETIAPINE [Interacting]
     Active Substance: QUETIAPINE
     Dosage: 100 MILLIGRAM, QD (1 EVERY 1 DAYS)
  153. QUETIAPINE [Interacting]
     Active Substance: QUETIAPINE
     Dosage: 50 MILLIGRAM, QID (4 EVERY 1 DAYS)
  154. RISPERDAL [Interacting]
     Active Substance: RISPERIDONE
     Indication: Affective disorder
     Dosage: 1 MILLIGRAM, QD (1 EVERY 1 DAYS)
  155. RISPERDAL [Interacting]
     Active Substance: RISPERIDONE
     Dosage: 0.25 MILLIGRAM, QD (1 EVERY 1 DAYS)
  156. RISPERDAL [Interacting]
     Active Substance: RISPERIDONE
     Dosage: 1 MILLIGRAM, QD (1 EVERY 1 DAYS)
  157. DOXEPIN [Interacting]
     Active Substance: DOXEPIN
     Indication: Major depression
     Dosage: 50 MILLIGRAM, QD (1 EVERY 1 DAYS)
  158. DOXEPIN [Interacting]
     Active Substance: DOXEPIN
     Dosage: 50 MILLIGRAM
  159. DOXEPIN [Interacting]
     Active Substance: DOXEPIN
     Dosage: 150 MILLIGRAM, QD (1 EVERY 1 DAYS)
  160. DOXEPIN [Interacting]
     Active Substance: DOXEPIN
     Dosage: 150 MILLIGRAM
  161. DOXEPIN [Interacting]
     Active Substance: DOXEPIN
     Dosage: 100 MILLIGRAM
  162. DOXEPIN [Interacting]
     Active Substance: DOXEPIN
     Dosage: 100 MILLIGRAM
  163. DOXEPIN [Interacting]
     Active Substance: DOXEPIN
     Dosage: UNK
  164. DOXEPIN [Interacting]
     Active Substance: DOXEPIN
     Dosage: 150 MILLIGRAM, QD (1 EVERY 1 DAYS)
  165. DOXEPIN [Interacting]
     Active Substance: DOXEPIN
     Dosage: 100 MILLIGRAM, QD (1 EVERY 1 DAYS)
  166. SPIRIVA [Concomitant]
     Active Substance: TIOTROPIUM BROMIDE MONOHYDRATE
     Dosage: 5 MILLIGRAM
  167. SPIRIVA [Concomitant]
     Active Substance: TIOTROPIUM BROMIDE MONOHYDRATE
     Dosage: UNK
  168. TIOTROPIUM BROMIDE [Concomitant]
     Active Substance: TIOTROPIUM BROMIDE
     Indication: Chronic obstructive pulmonary disease
     Dosage: 5 MILLIGRAM
  169. TIOTROPIUM BROMIDE [Concomitant]
     Active Substance: TIOTROPIUM BROMIDE
     Dosage: 5 MILLIGRAM, QD (1 EVERY 1 DAYS)
  170. TIOTROPIUM BROMIDE [Concomitant]
     Active Substance: TIOTROPIUM BROMIDE
     Dosage: 5 MICROGRAM, QD (1 EVERY 24 HOURS)
  171. TIOTROPIUM BROMIDE [Concomitant]
     Active Substance: TIOTROPIUM BROMIDE
     Dosage: UNK
  172. TIOTROPIUM BROMIDE [Concomitant]
     Active Substance: TIOTROPIUM BROMIDE
     Dosage: 5 MICROGRAM, QD (1 EVERY 1 DAYS)
  173. NALOXONE [Concomitant]
     Active Substance: NALOXONE
     Indication: Pain
     Dosage: UNK
  174. NALOXONE [Concomitant]
     Active Substance: NALOXONE
     Dosage: 500 MILLIGRAM, BID
  175. NALOXONE [Concomitant]
     Active Substance: NALOXONE
     Dosage: 500 MILLIGRAM
  176. ESTRADIOL [Concomitant]
     Active Substance: ESTRADIOL
     Indication: Endometriosis
     Dosage: 0.5 MILLIGRAM, QD (1 EVERY 1 DAYS)
  177. ESTRADIOL [Concomitant]
     Active Substance: ESTRADIOL
     Dosage: UNK
  178. FUROSEMIDE [Concomitant]
     Active Substance: FUROSEMIDE
     Indication: Oedema peripheral
     Dosage: UNK
  179. FUROSEMIDE [Concomitant]
     Active Substance: FUROSEMIDE
     Dosage: 40 MILLIGRAM, QD (1 EVERY 1 DAYS)
  180. FUROSEMIDE [Concomitant]
     Active Substance: FUROSEMIDE
     Dosage: 40 MILLIGRAM
  181. ALBUTEROL [Concomitant]
     Active Substance: ALBUTEROL
     Indication: Chronic obstructive pulmonary disease
     Dosage: 200 MICROGRAM
  182. ALBUTEROL [Concomitant]
     Active Substance: ALBUTEROL
     Dosage: 200 MICROGRAM
  183. ALBUTEROL [Concomitant]
     Active Substance: ALBUTEROL
     Dosage: 200 MICROGRAM, BID (2 EVERY 1 DAYS)
  184. ALBUTEROL [Concomitant]
     Active Substance: ALBUTEROL
     Dosage: 200 MICROGRAM, (1 EVERY .5 DAYS)
  185. ALBUTEROL [Concomitant]
     Active Substance: ALBUTEROL
     Dosage: UNK
  186. ATENOLOL [Concomitant]
     Active Substance: ATENOLOL
     Indication: Hypertension
     Dosage: 50 MILLIGRAM, QD (1 EVERY 24 HOURS)
  187. ATENOLOL [Concomitant]
     Active Substance: ATENOLOL
     Dosage: UNK
  188. ATENOLOL [Concomitant]
     Active Substance: ATENOLOL
     Dosage: UNK
  189. ATENOLOL [Concomitant]
     Active Substance: ATENOLOL
     Dosage: 50 MILLIGRAM, QD (1 EVERY 1 DAYS)
  190. CLONIDINE [Concomitant]
     Active Substance: CLONIDINE
     Indication: Drug withdrawal syndrome
     Dosage: UNK
  191. CLONIDINE [Concomitant]
     Active Substance: CLONIDINE
     Indication: Pain
     Dosage: 0.1 MILLIGRAM
  192. NAPROXEN [Concomitant]
     Active Substance: NAPROXEN
     Indication: Scoliosis
     Dosage: 500 MILLIGRAM, BID ( 2 EVERY 1 DAYS)
  193. NAPROXEN [Concomitant]
     Active Substance: NAPROXEN
     Indication: Pain
     Dosage: 500 MILLIGRAM, (1 EVERY .5 DAYS)
  194. NAPROXEN [Concomitant]
     Active Substance: NAPROXEN
     Dosage: 5 MICROGRAM, QD (1 EVERY 1 DAYS)
  195. NAPROXEN [Concomitant]
     Active Substance: NAPROXEN
     Dosage: UNK
  196. TIOTROPIUM BROMIDE MONOHYDRATE [Concomitant]
     Active Substance: TIOTROPIUM BROMIDE MONOHYDRATE
     Dosage: UNK

REACTIONS (7)
  - Depressed level of consciousness [Unknown]
  - Respiratory depression [Unknown]
  - Toxicity to various agents [Unknown]
  - Drug interaction [Unknown]
  - Mania [Recovering/Resolving]
  - Multiple drug therapy [Recovering/Resolving]
  - Off label use [Unknown]
